FAERS Safety Report 9364601 (Version 1)
Quarter: 2013Q2

REPORT INFORMATION
  Report Type: Report from Study
  Country: NL (occurrence: NL)
  Receive Date: 20130624
  Receipt Date: 20130624
  Transmission Date: 20140414
  Serious: Yes (Other)
  Sender: FDA-Public Use
  Company Number: PHHY2013NL064058

PATIENT
  Sex: Male

DRUGS (4)
  1. ZOMETA [Suspect]
     Indication: PROSTATE CANCER METASTATIC
     Dosage: 4 MG/ 100 ML ONCE EVERY 6 WEEKS
  2. ZOMETA [Suspect]
     Dosage: 4 MG/ 100 ML ONCE EVERY 6 WEEKS
     Dates: start: 20100503
  3. ZOMETA [Suspect]
     Dosage: 4 MG/ 100 ML ONCE EVERY 6 WEEKS
     Dates: start: 20130405
  4. ZOMETA [Suspect]
     Dosage: 4 MG/ 100 ML ONCE EVERY 6 WEEKS
     Dates: start: 20130507

REACTIONS (1)
  - Osteonecrosis of jaw [Unknown]
